FAERS Safety Report 22944993 (Version 3)
Quarter: 2024Q3

REPORT INFORMATION
  Report Type: Spontaneous
  Country: US (occurrence: US)
  Receive Date: 20230914
  Receipt Date: 20240802
  Transmission Date: 20241017
  Serious: No
  Sender: PFIZER
  Company Number: US-PFIZER INC-PV202300154069

PATIENT
  Age: 67 Year
  Sex: Female

DRUGS (1)
  1. IBRANCE [Suspect]
     Active Substance: PALBOCICLIB
     Indication: Neoplasm malignant
     Dosage: 125 MG

REACTIONS (5)
  - Tremor [Unknown]
  - Dysgraphia [Unknown]
  - Asthenia [Unknown]
  - Malaise [Unknown]
  - Pain [Unknown]
